FAERS Safety Report 9251205 (Version 2)
Quarter: 2014Q1

REPORT INFORMATION
  Report Type: Spontaneous
  Country: US (occurrence: US)
  Receive Date: 20130424
  Receipt Date: 20140102
  Transmission Date: 20141002
  Serious: Yes (Hospitalization)
  Sender: FDA-Public Use
  Company Number: US-ASTRAZENECA-2013SE27173

PATIENT
  Age: 38 Year
  Sex: Female

DRUGS (12)
  1. NEXIUM [Suspect]
     Indication: DYSPEPSIA
     Route: 048
     Dates: start: 1994, end: 2005
  2. NEXIUM [Suspect]
     Indication: GASTROOESOPHAGEAL REFLUX DISEASE
     Route: 048
     Dates: start: 1994, end: 2005
  3. PRILOSEC [Suspect]
     Route: 048
  4. TAGAMET [Concomitant]
     Dates: start: 1990
  5. MYLANTA [Concomitant]
     Dates: start: 1990
  6. TUMS [Concomitant]
     Dates: start: 1990
  7. ESTROGEN [Concomitant]
     Indication: HORMONE REPLACEMENT THERAPY
  8. LIPITOR [Concomitant]
     Indication: BLOOD CHOLESTEROL INCREASED
  9. CARDIZEM CD [Concomitant]
  10. LISINOPRIL [Concomitant]
  11. ATENOLOL [Concomitant]
  12. HYDROCHLOROTHIAZIDE [Concomitant]
     Indication: HYPERTENSION

REACTIONS (7)
  - Arthropathy [Unknown]
  - Osteoporosis [Unknown]
  - Bone disorder [Unknown]
  - Multiple fractures [Unknown]
  - Bone loss [Unknown]
  - Back pain [Unknown]
  - Hypothyroidism [Unknown]
